FAERS Safety Report 7328490-5 (Version None)
Quarter: 2011Q1

REPORT INFORMATION
  Report Type: 
  Country: None (occurrence: None)
  Receive Date: 20110225
  Receipt Date: 20110225
  Transmission Date: 20110831
  Serious: Yes (Hospitalization)
  Sender: FDA-Public Use
  Company Number: None

PATIENT
  Sex: Female
  Weight: 79.3795 kg

DRUGS (10)
  1. ZOLOFT [Concomitant]
  2. CLARINEX [Concomitant]
  3. AMBIEN [Concomitant]
  4. DEXILANT [Suspect]
     Indication: GASTROOESOPHAGEAL REFLUX DISEASE
     Dosage: 60MG QD PO
     Route: 048
     Dates: start: 20110220
  5. DEXILANT [Suspect]
     Indication: GASTROOESOPHAGEAL REFLUX DISEASE
     Dosage: 60MG QD PO
     Route: 048
     Dates: start: 20110220
  6. DEXILANT [Suspect]
     Indication: GASTROOESOPHAGEAL REFLUX DISEASE
     Dosage: 60MG QD PO
     Route: 048
     Dates: start: 20110219
  7. BABAY ASPIRIN [Concomitant]
  8. TOPORAL [Concomitant]
  9. TRAMADOL [Concomitant]
  10. LIPITOR [Concomitant]

REACTIONS (4)
  - HEADACHE [None]
  - AMNESIA [None]
  - NAUSEA [None]
  - VOMITING [None]
